FAERS Safety Report 4470607-4 (Version None)
Quarter: 2004Q4

REPORT INFORMATION
  Report Type: 
  Country: None (occurrence: None)
  Receive Date: 20041011
  Receipt Date: 20040930
  Transmission Date: 20050328
  Serious: Yes (Hospitalization)
  Sender: FDA-Public Use
  Company Number: GB-BRISTOL-MYERS SQUIBB COMPANY-12725396

PATIENT
  Age: 77 Year
  Sex: Female

DRUGS (7)
  1. SINEMET [Suspect]
     Indication: PARKINSONISM
     Route: 048
     Dates: start: 20031201
  2. MADOPAR [Suspect]
     Indication: PARKINSONISM
     Route: 048
  3. CABERGOLINE [Suspect]
     Dates: start: 20031201
  4. ATROPINE [Concomitant]
  5. CITALOPRAM [Concomitant]
  6. GABAPENTIN [Concomitant]
  7. QUETIAPINE FUMARATE [Concomitant]

REACTIONS (3)
  - BLOOD PRESSURE DECREASED [None]
  - CONFUSIONAL STATE [None]
  - FALL [None]
